FAERS Safety Report 6019966-1 (Version None)
Quarter: 2008Q4

REPORT INFORMATION
  Report Type: 
  Country: None (occurrence: None)
  Receive Date: 20081224
  Receipt Date: 20081218
  Transmission Date: 20090506
  Serious: Yes (Hospitalization)
  Sender: FDA-Public Use
  Company Number: PHHO2008CA14013

PATIENT
  Age: 67 Year
  Sex: Male
  Weight: 83.6 kg

DRUGS (3)
  1. ERL 080A ERL+TAB [Suspect]
     Indication: RENAL TRANSPLANT
     Dosage: 360 MG, BID
     Route: 048
     Dates: start: 20080419
  2. TACROLIMUS [Suspect]
     Indication: RENAL TRANSPLANT
     Dosage: UNKNOWN
     Route: 048
     Dates: start: 20081016
  3. PREDNISOLONE TAB [Suspect]
     Indication: RENAL TRANSPLANT
     Dosage: 7.5 MG
     Route: 048
     Dates: start: 20080422

REACTIONS (12)
  - ANGIOPLASTY [None]
  - ARTERIOSCLEROSIS [None]
  - ASTHENIA [None]
  - CELLULITIS [None]
  - CLOSTRIDIUM DIFFICILE COLITIS [None]
  - CONCOMITANT DISEASE PROGRESSION [None]
  - DIARRHOEA [None]
  - ENDARTERECTOMY [None]
  - LYMPHOCELE [None]
  - PYREXIA [None]
  - SEROMA [None]
  - WOUND COMPLICATION [None]
